FAERS Safety Report 5901070-1 (Version None)
Quarter: 2008Q3

REPORT INFORMATION
  Report Type: 
  Country: None (occurrence: None)
  Receive Date: 20080929
  Receipt Date: 20021011
  Transmission Date: 20090109
  Serious: Yes (Hospitalization)
  Sender: FDA-Public Use
  Company Number: US-BAYER-200222495BWH

PATIENT
  Age: 74 Year
  Sex: Female
  Weight: 62 kg

DRUGS (17)
  1. AVELOX [Suspect]
     Dosage: UNIT DOSE: 400 MG
     Route: 042
     Dates: start: 20020818
  2. DIGOXIN [Concomitant]
  3. GUAIFENESIN [Concomitant]
  4. POTASSIUM CHLORIDE [Concomitant]
  5. GLIPIZIDE [Concomitant]
  6. OMEPRAZOLE [Concomitant]
  7. COLACE [Concomitant]
  8. ACETAMINOPHEN [Concomitant]
  9. MORPHINE [Concomitant]
  10. OXYCODONE HCL [Concomitant]
  11. ATENOLOL [Concomitant]
  12. METOCLOPRAMIDE [Concomitant]
  13. EPOETIN [Concomitant]
  14. PREDNISONE TAB [Concomitant]
  15. FUROSEMIDE [Concomitant]
  16. FLUCONAZOLE [Concomitant]
  17. DIPHENHYDRAMINE HCL [Concomitant]

REACTIONS (1)
  - INTERNATIONAL NORMALISED RATIO INCREASED [None]
